FAERS Safety Report 24834972 (Version 2)
Quarter: 2025Q1

REPORT INFORMATION
  Report Type: Report from Study
  Country: FI (occurrence: FI)
  Receive Date: 20250113
  Receipt Date: 20250127
  Transmission Date: 20250409
  Serious: No
  Sender: SAREPTA THERAPEUTICS
  Company Number: FI-SAREPTA THERAPEUTICS INC.-SRP2024-005462

PATIENT

DRUGS (6)
  1. GOLODIRSEN [Suspect]
     Active Substance: GOLODIRSEN
     Indication: Duchenne muscular dystrophy
     Route: 042
     Dates: start: 20240110, end: 20240130
  2. GOLODIRSEN [Suspect]
     Active Substance: GOLODIRSEN
     Route: 042
     Dates: start: 20240131, end: 20241231
  3. ENALAPRIL MALEATE [Concomitant]
     Active Substance: ENALAPRIL MALEATE
     Indication: Product used for unknown indication
     Dosage: 10 MILLIGRAM, QD
  4. SPIRONOLACTONE [Concomitant]
     Active Substance: SPIRONOLACTONE
     Indication: Product used for unknown indication
     Dosage: 12.5 MILLIGRAM, QD
  5. BISOPROLOL [Concomitant]
     Active Substance: BISOPROLOL
     Indication: Product used for unknown indication
     Dosage: 2.5 MILLIGRAM, QD
  6. DEFLAZACORT [Concomitant]
     Active Substance: DEFLAZACORT
     Indication: Product used for unknown indication
     Dosage: 18 MILLIGRAM, QD

REACTIONS (3)
  - Renal failure [Not Recovered/Not Resolved]
  - Protein urine present [Not Recovered/Not Resolved]
  - Cystatin C increased [Not Recovered/Not Resolved]

NARRATIVE: CASE EVENT DATE: 20241231
